FAERS Safety Report 21324919 (Version 2)
Quarter: 2022Q4

REPORT INFORMATION
  Report Type: Spontaneous
  Country: JP (occurrence: JP)
  Receive Date: 20220912
  Receipt Date: 20221006
  Transmission Date: 20230112
  Serious: No
  Sender: FDA-Public Use
  Company Number: JP-BRISTOL-MYERS SQUIBB COMPANY-2022-104519

PATIENT
  Sex: Male

DRUGS (2)
  1. VIDAZA [Suspect]
     Active Substance: AZACITIDINE
     Indication: Product used for unknown indication
     Dosage: THERAPY DURATION 1- UNSPECIFIED
     Route: 065
  2. VIDAZA [Suspect]
     Active Substance: AZACITIDINE

REACTIONS (1)
  - No adverse event [Unknown]
